FAERS Safety Report 9830258 (Version 2)
Quarter: 2014Q1

REPORT INFORMATION
  Report Type: Spontaneous
  Country: BR (occurrence: BR)
  Receive Date: 20140120
  Receipt Date: 20140120
  Transmission Date: 20141002
  Serious: Yes (Hospitalization)
  Sender: FDA-Public Use
  Company Number: BR-009507513-2010SP044870

PATIENT
  Age: 33 Year
  Sex: Female
  Weight: 70 kg

DRUGS (2)
  1. MERCILON CONTI [Suspect]
     Indication: CONTRACEPTION
     Dosage: 1 DF, QD
     Route: 048
     Dates: start: 2009, end: 20140113
  2. MERCILON CONTI [Suspect]
     Indication: PREMENSTRUAL SYNDROME

REACTIONS (7)
  - Endometriosis [Recovered/Resolved]
  - Endometriosis ablation [Recovered/Resolved]
  - Menstruation irregular [Unknown]
  - Drug administration error [Unknown]
  - Drug administration error [Unknown]
  - Inappropriate schedule of drug administration [Unknown]
  - Off label use [Unknown]
